FAERS Safety Report 4915549-2 (Version None)
Quarter: 2006Q1

REPORT INFORMATION
  Report Type: 
  Country: None (occurrence: None)
  Receive Date: 20060113
  Receipt Date: 20050924
  Transmission Date: 20060701
  Serious: No
  Sender: FDA-Public Use
  Company Number: 2005SP003198

PATIENT

DRUGS (2)
  1. LUNESTA [Suspect]
     Dosage: HS;ORAL
     Route: 048
     Dates: start: 20050923
  2. VALIUM [Concomitant]

REACTIONS (2)
  - DRUG INEFFECTIVE [None]
  - MIDDLE INSOMNIA [None]
